FAERS Safety Report 5692938-2 (Version None)
Quarter: 2008Q2

REPORT INFORMATION
  Report Type: 
  Country: None (occurrence: None)
  Receive Date: 20080328
  Receipt Date: 20070720
  Transmission Date: 20081010
  Serious: Yes (Hospitalization)
  Sender: FDA-Public Use
  Company Number: HQWYE172823JUL07

PATIENT
  Age: 85 Year
  Sex: Female
  Weight: 68.1 kg

DRUGS (19)
  1. PROTONIX [Suspect]
     Indication: GASTROINTESTINAL HAEMORRHAGE
     Dosage: 40 MG 2X PER 1 DAY, ORAL; 40 MG 1X PER 1 DAY, ORAL
     Route: 048
     Dates: start: 20070326, end: 20070501
  2. PROTONIX [Suspect]
     Indication: PROPHYLAXIS
     Dosage: 40 MG 2X PER 1 DAY, ORAL; 40 MG 1X PER 1 DAY, ORAL
     Route: 048
     Dates: start: 20070326, end: 20070501
  3. PROTONIX [Suspect]
     Indication: GASTROINTESTINAL HAEMORRHAGE
     Dosage: 40 MG 2X PER 1 DAY, ORAL; 40 MG 1X PER 1 DAY, ORAL
     Route: 048
     Dates: start: 20070502, end: 20070606
  4. PROTONIX [Suspect]
     Indication: PROPHYLAXIS
     Dosage: 40 MG 2X PER 1 DAY, ORAL; 40 MG 1X PER 1 DAY, ORAL
     Route: 048
     Dates: start: 20070502, end: 20070606
  5. ALLOPURINOL [Concomitant]
  6. ATENOLOL [Concomitant]
  7. DIGOXIN [Concomitant]
  8. FUROSEMIDE [Concomitant]
  9. HYDROCODONE BITARTRATE + ACETAMINOPHEN [Concomitant]
  10. ISOSORBIDE DINITRATE [Concomitant]
  11. LISINOPRIL [Concomitant]
  12. OXYCODONE (OYXCODONE) [Concomitant]
  13. PREDNISONE TAB [Concomitant]
  14. SERTRALINE [Concomitant]
  15. ACETAMINOPHEN [Concomitant]
  16. ACETYLSALICYLIC ACID SRT [Concomitant]
  17. CALCIUM WITH VITAMIN D (CALCIUM PHOSPHATE/CALCIUM SODIUM LACTATE/ERGOC [Concomitant]
  18. MULTI-VITAMINS [Concomitant]
  19. ACID/ERGOCALCIFEROL/FOLIC ACID/NICOTINAMIDE/PANTHENOL/RETINOL/RIBOFLAV [Concomitant]

REACTIONS (5)
  - DIARRHOEA [None]
  - NAUSEA [None]
  - STOMACH DISCOMFORT [None]
  - URINARY TRACT INFECTION [None]
  - VOMITING [None]
